FAERS Safety Report 8958640 (Version 1)
Quarter: 2012Q4

REPORT INFORMATION
  Report Type: Spontaneous
  Country: US (occurrence: None)
  Receive Date: 20121206
  Receipt Date: 20121206
  Transmission Date: 20130627
  Serious: No
  Sender: FDA-Public Use
  Company Number: None

PATIENT
  Sex: Female
  Weight: 77.11 kg

DRUGS (1)
  1. TOPIRAMATE [Suspect]
     Indication: CHRONIC MIGRAINE
     Dosage: Topiramate 50mg 3 BID PO
     Route: 048

REACTIONS (2)
  - Migraine [None]
  - Product substitution issue [None]
